FAERS Safety Report 13796422 (Version 1)
Quarter: 2017Q3

REPORT INFORMATION
  Report Type: Spontaneous
  Country: US (occurrence: US)
  Receive Date: 20170726
  Receipt Date: 20170726
  Transmission Date: 20171127
  Serious: No
  Sender: FDA-Public Use
  Company Number: US-AMGEN-USASP2017032083

PATIENT
  Age: 72 Year
  Sex: Male
  Weight: 90.7 kg

DRUGS (5)
  1. REVLIMID [Concomitant]
     Active Substance: LENALIDOMIDE
     Indication: PLASMA CELL MYELOMA
     Dosage: UNK
  2. KYPROLIS [Suspect]
     Active Substance: CARFILZOMIB
     Indication: PLASMA CELL MYELOMA
     Dosage: 20 TO 30MG, MONDAY AND TUESDAY ON FOR THREE WEEKS AND THEN OFF FOR ONE WEEK
     Route: 065
     Dates: end: 2016
  3. DEXAMETHASONE. [Concomitant]
     Active Substance: DEXAMETHASONE
     Dosage: 60 MG, UNK
  4. DEXAMETHASONE. [Concomitant]
     Active Substance: DEXAMETHASONE
     Indication: PLASMA CELL MYELOMA
     Dosage: UNK
  5. KYPROLIS [Suspect]
     Active Substance: CARFILZOMIB
     Dosage: AROUND 40MG, MONDAY AND TUESDAY ON FOR THREE WEEKS AND THEN OFF FOR ONE WEEK
     Route: 065

REACTIONS (6)
  - Insomnia [Unknown]
  - Dyspnoea [Unknown]
  - Intra-abdominal fluid collection [Unknown]
  - Panic attack [Unknown]
  - Oedema peripheral [Unknown]
  - Anxiety [Unknown]
